FAERS Safety Report 9303904 (Version 1)
Quarter: 2013Q2

REPORT INFORMATION
  Report Type: Spontaneous
  Country: US (occurrence: None)
  Receive Date: 20130521
  Receipt Date: 20130521
  Transmission Date: 20140414
  Serious: Yes (Life-Threatening)
  Sender: FDA-Public Use
  Company Number: None

PATIENT
  Age: 56 Year
  Sex: Male
  Weight: 90 kg

DRUGS (1)
  1. VITAMIN K [Suspect]
     Indication: INTERNATIONAL NORMALISED RATIO INCREASED
     Route: 041
     Dates: start: 20130515, end: 20130515

REACTIONS (3)
  - Cardio-respiratory arrest [None]
  - Infusion related reaction [None]
  - Drug hypersensitivity [None]
